FAERS Safety Report 4992950-2 (Version None)
Quarter: 2006Q2

REPORT INFORMATION
  Report Type: 
  Country: None (occurrence: None)
  Receive Date: 20060504
  Receipt Date: 20050715
  Transmission Date: 20061013
  Serious: Yes (Hospitalization)
  Sender: FDA-Public Use
  Company Number: US-MERCK-0507USA02557

PATIENT
  Age: 59 Year
  Sex: Male
  Weight: 76 kg

DRUGS (2)
  1. VIOXX [Suspect]
     Indication: OSTEOARTHRITIS
     Route: 048
     Dates: start: 20030103, end: 20031014
  2. VIOXX [Suspect]
     Route: 048
     Dates: start: 20030103, end: 20031014

REACTIONS (7)
  - ACUTE MYOCARDIAL INFARCTION [None]
  - BACK PAIN [None]
  - DEPRESSION [None]
  - ISCHAEMIC CARDIOMYOPATHY [None]
  - SLEEP APNOEA SYNDROME [None]
  - SUPRAVENTRICULAR TACHYCARDIA [None]
  - VENTRICULAR EXTRASYSTOLES [None]
